FAERS Safety Report 7591065-7 (Version None)
Quarter: 2011Q3

REPORT INFORMATION
  Report Type: 
  Country: None (occurrence: None)
  Receive Date: 20110705
  Receipt Date: 20110628
  Transmission Date: 20111222
  Serious: Yes (Life-Threatening, Hospitalization)
  Sender: FDA-Public Use
  Company Number: FR-MERCK-1106FRA00110

PATIENT
  Age: 56 Year
  Sex: Female

DRUGS (6)
  1. ROSUVASTATIN CALCIUM [Suspect]
     Route: 048
     Dates: end: 20110423
  2. ZETIA [Suspect]
     Route: 048
     Dates: end: 20110423
  3. HYDROCHLOROTHIAZIDE [Suspect]
     Route: 048
     Dates: end: 20110423
  4. METFORMIN HYDROCHLORIDE [Suspect]
     Route: 048
     Dates: end: 20110423
  5. PREGABALIN [Suspect]
     Route: 048
     Dates: end: 20110423
  6. RAMIPRIL [Suspect]
     Route: 048
     Dates: end: 20110423

REACTIONS (3)
  - ACIDOSIS [None]
  - RENAL FAILURE ACUTE [None]
  - RHABDOMYOLYSIS [None]
